FAERS Safety Report 24019924 (Version 1)
Quarter: 2024Q2

REPORT INFORMATION
  Report Type: Report from Study
  Country: GB (occurrence: GB)
  Receive Date: 20240627
  Receipt Date: 20240627
  Transmission Date: 20240715
  Serious: Yes (Other)
  Sender: FDA-Public Use
  Company Number: GB-UCBSA-2024032431

PATIENT

DRUGS (2)
  1. LEVETIRACETAM [Suspect]
     Active Substance: LEVETIRACETAM
     Indication: Epilepsy
     Dosage: MEAN START DOSE WAS 563.2 MG IN ^NO ID^ GROUP, 497.1 MG IN ^MILD ID^ GROUP AND 547.8 MG IN ^MODERATE
  2. LEVETIRACETAM [Suspect]
     Active Substance: LEVETIRACETAM
     Dosage: MEAN MAX DOSE WAS 1246.0 MG IN ^NO ID^ GROUP, 1446.0 MG IN ^MILD ID^ GROUP AND 1333.0 MG IN ^MODERAT

REACTIONS (24)
  - Seizure [Unknown]
  - Abdominal pain [Unknown]
  - Aggression [Unknown]
  - Decreased appetite [Unknown]
  - Anxiety [Unknown]
  - Ataxia [Unknown]
  - Cough [Unknown]
  - Depression [Unknown]
  - Diarrhoea [Unknown]
  - Dizziness [Unknown]
  - Somnolence [Unknown]
  - Dyspepsia [Unknown]
  - Headache [Unknown]
  - Insomnia [Unknown]
  - Irritability [Unknown]
  - Malaise [Unknown]
  - Nausea [Unknown]
  - Rash [Unknown]
  - Tremor [Unknown]
  - Vertigo [Unknown]
  - Vomiting [Unknown]
  - Therapeutic product effect incomplete [Unknown]
  - Drug ineffective [Unknown]
  - Drug tolerance [Unknown]
